FAERS Safety Report 19419647 (Version 1)
Quarter: 2021Q2

REPORT INFORMATION
  Report Type: Report from Study
  Country: None (occurrence: NL)
  Receive Date: 20210615
  Receipt Date: 20210615
  Transmission Date: 20210717
  Serious: Yes (Other)
  Sender: FDA-Public Use
  Company Number: NL-ABBVIE-21P-114-3876702-00

PATIENT
  Age: 4 Month
  Sex: Male
  Weight: 7.7 kg

DRUGS (8)
  1. SYNAGIS [Suspect]
     Active Substance: PALIVIZUMAB
     Indication: RESPIRATORY SYNCYTIAL VIRUS INFECTION
     Route: 030
     Dates: start: 20200928, end: 2020
  2. SYNAGIS [Suspect]
     Active Substance: PALIVIZUMAB
     Indication: RESPIRATORY SYNCYTIAL VIRUS INFECTION
     Route: 030
     Dates: start: 20201027, end: 2020
  3. SYNAGIS [Suspect]
     Active Substance: PALIVIZUMAB
     Indication: RESPIRATORY SYNCYTIAL VIRUS INFECTION
     Route: 030
     Dates: start: 20210216, end: 2021
  4. SYNAGIS [Suspect]
     Active Substance: PALIVIZUMAB
     Indication: RESPIRATORY SYNCYTIAL VIRUS INFECTION
     Route: 030
     Dates: start: 20201221
  5. SYNAGIS [Suspect]
     Active Substance: PALIVIZUMAB
     Indication: RESPIRATORY SYNCYTIAL VIRUS INFECTION
     Route: 030
     Dates: start: 20210413
  6. SYNAGIS [Suspect]
     Active Substance: PALIVIZUMAB
     Indication: RESPIRATORY SYNCYTIAL VIRUS INFECTION
     Route: 030
     Dates: start: 20210316, end: 2021
  7. SYNAGIS [Suspect]
     Active Substance: PALIVIZUMAB
     Indication: RESPIRATORY SYNCYTIAL VIRUS INFECTION
     Route: 030
     Dates: start: 20210119, end: 2021
  8. SYNAGIS [Suspect]
     Active Substance: PALIVIZUMAB
     Indication: RESPIRATORY SYNCYTIAL VIRUS INFECTION
     Route: 030
     Dates: start: 20201124, end: 2020

REACTIONS (8)
  - Nasopharyngitis [Recovering/Resolving]
  - Gastrooesophageal reflux disease [Not Recovered/Not Resolved]
  - Wheezing [Recovering/Resolving]
  - Eczema [Recovering/Resolving]
  - Cough [Recovered/Resolved]
  - Inguinal hernia [Recovered/Resolved]
  - Nasal congestion [Not Recovered/Not Resolved]
  - Rash [Not Recovered/Not Resolved]

NARRATIVE: CASE EVENT DATE: 20201221
